FAERS Safety Report 19154224 (Version 1)
Quarter: 2021Q2

REPORT INFORMATION
  Report Type: Spontaneous
  Country: GB (occurrence: GB)
  Receive Date: 20210419
  Receipt Date: 20210419
  Transmission Date: 20210717
  Serious: Yes (Hospitalization)
  Sender: FDA-Public Use
  Company Number: GB-SAMSUNG BIOEPIS-SB-2021-09488

PATIENT
  Age: 10 Year
  Sex: Female

DRUGS (3)
  1. MESALAZINE [Concomitant]
     Active Substance: MESALAMINE
     Indication: COLITIS ULCERATIVE
     Route: 048
  2. INFLIXIMAB [Suspect]
     Active Substance: INFLIXIMAB
     Indication: COLITIS ULCERATIVE
     Route: 042
  3. INFLIXIMAB [Suspect]
     Active Substance: INFLIXIMAB
     Indication: MULTISYSTEM INFLAMMATORY SYNDROME IN CHILDREN

REACTIONS (7)
  - Multisystem inflammatory syndrome in children [Recovered/Resolved]
  - Vitamin D decreased [Unknown]
  - COVID-19 [Recovered/Resolved]
  - Proteinuria [Unknown]
  - Off label use [Unknown]
  - Acute kidney injury [Unknown]
  - Exposure to communicable disease [Unknown]
